FAERS Safety Report 24251809 (Version 1)
Quarter: 2024Q3

REPORT INFORMATION
  Report Type: Spontaneous
  Country: CN (occurrence: CN)
  Receive Date: 20240827
  Receipt Date: 20240827
  Transmission Date: 20241017
  Serious: Yes (Hospitalization)
  Sender: ACCORD
  Company Number: None

PATIENT
  Age: 41 Year
  Sex: Female

DRUGS (4)
  1. TRASTUZUMAB [Suspect]
     Active Substance: TRASTUZUMAB
     Indication: Invasive ductal breast carcinoma
     Dosage: 60 MILLIGRAM, QD
     Route: 042
     Dates: start: 20240528, end: 20240528
  2. DOCETAXEL [Suspect]
     Active Substance: DOCETAXEL\DOCETAXEL ANHYDROUS
     Indication: Invasive ductal breast carcinoma
     Dosage: 120 MILLIGRAM, QD; IV DRIP
     Route: 042
     Dates: start: 20240528, end: 20240528
  3. PYROTINIB [Suspect]
     Active Substance: PYROTINIB
     Indication: Invasive ductal breast carcinoma
     Dosage: 240 MILLIGRAM, QD; ORAL USE
     Route: 048
     Dates: start: 20240528, end: 20240528
  4. TRASTUZUMAB [Suspect]
     Active Substance: TRASTUZUMAB
     Indication: Invasive ductal breast carcinoma
     Dosage: 300 MILLIGRAM, QD; IV DRIP
     Route: 042
     Dates: start: 20240528, end: 20240528

REACTIONS (2)
  - Myelosuppression [Recovering/Resolving]
  - Hepatic function abnormal [Recovering/Resolving]

NARRATIVE: CASE EVENT DATE: 20240531
